FAERS Safety Report 14201167 (Version 1)
Quarter: 2017Q4

REPORT INFORMATION
  Report Type: Spontaneous
  Country: US (occurrence: US)
  Receive Date: 20171117
  Receipt Date: 20171117
  Transmission Date: 20180321
  Serious: No
  Sender: FDA-Public Use
  Company Number: US-PFIZER INC-2017489270

PATIENT
  Age: 42 Year
  Sex: Male
  Weight: 105.2 kg

DRUGS (5)
  1. CHANTIX [Suspect]
     Active Substance: VARENICLINE TARTRATE
     Indication: SMOKING CESSATION THERAPY
     Dosage: 1MG TABLET, 0.5 TABLET TWICE A DAY
     Route: 048
     Dates: start: 20171009, end: 20171013
  2. METOPROLOL. [Concomitant]
     Active Substance: METOPROLOL
     Indication: HYPERTENSION
     Dosage: 150 MG, 1X/DAY (75MG TABLET, 2 TABLETS AT NIGHT)
  3. CHANTIX [Suspect]
     Active Substance: VARENICLINE TARTRATE
     Dosage: 1 MG, 2X/DAY
     Route: 048
     Dates: start: 20171014
  4. LOSARTAN. [Concomitant]
     Active Substance: LOSARTAN
     Indication: HYPERTENSION
     Dosage: 2 DF, 1X/DAY
  5. WELLBUTRIN [Concomitant]
     Active Substance: BUPROPION HYDROCHLORIDE
     Indication: DEPRESSION
     Dosage: 0.5 DF, 1X/DAY

REACTIONS (5)
  - Aversion [Not Recovered/Not Resolved]
  - Parosmia [Not Recovered/Not Resolved]
  - Nausea [Not Recovered/Not Resolved]
  - Intentional product misuse [Unknown]
  - Weight increased [Unknown]

NARRATIVE: CASE EVENT DATE: 2017
